FAERS Safety Report 8625594-1 (Version None)
Quarter: 2012Q3

REPORT INFORMATION
  Report Type: 
  Country: None (occurrence: None)
  Receive Date: 20120827
  Receipt Date: 20120822
  Transmission Date: 20120928
  Serious: Yes (Other)
  Sender: FDA-Public Use
  Company Number: US-PFIZER INC-2012206563

PATIENT
  Age: 52 Year
  Sex: Female

DRUGS (11)
  1. AMITRIPTYLINE [Concomitant]
     Dosage: 10 MG, 3X/DAY
  2. TRAMADOL HYDROCHLORIDE [Concomitant]
     Dosage: 200 MG, 2X/DAY
  3. METORAL [Concomitant]
     Dosage: UNK, 1X/DAY (QD)
  4. HYDROCHLOROTHIAZIDE [Concomitant]
     Dosage: 25 MG, QD PRN
  5. LORTAB [Concomitant]
     Dosage: 10/500 UNK, 2X/DAY
  6. METOLAZONE [Concomitant]
     Indication: SWELLING
     Dosage: 10 MG, AS NEEDED
  7. GLIPIZIDE [Concomitant]
     Dosage: 5 MG, 1/2, 2X/DAY
  8. ALLOPURINOL [Concomitant]
     Dosage: 300 MG, 1X/DAY (QD)
     Route: 048
  9. LORTAB [Concomitant]
     Dosage: UNK, 1/2 3X/DAY
     Route: 048
  10. LYRICA [Suspect]
     Dosage: 150 MG, 3X/DAY
  11. METFORMIN [Concomitant]
     Dosage: 500 MG, 2X/DAY

REACTIONS (6)
  - DIZZINESS [None]
  - OTITIS MEDIA [None]
  - EAR DISCOMFORT [None]
  - GOUT [None]
  - HYPOACUSIS [None]
  - NEUROPATHY PERIPHERAL [None]
